FAERS Safety Report 6825278-6 (Version None)
Quarter: 2010Q3

REPORT INFORMATION
  Report Type: 
  Country: None (occurrence: None)
  Receive Date: 20100708
  Receipt Date: 20061227
  Transmission Date: 20110219
  Serious: No
  Sender: FDA-Public Use
  Company Number: US-PFIZER INC-2007001169

PATIENT
  Sex: Male

DRUGS (3)
  1. CHANTIX [Suspect]
     Indication: SMOKING CESSATION THERAPY
     Dates: start: 20060101
  2. AMBIEN [Concomitant]
     Indication: INSOMNIA
  3. WELLBUTRIN [Concomitant]
     Indication: SMOKING CESSATION THERAPY

REACTIONS (3)
  - ANGER [None]
  - IMPATIENCE [None]
  - MOOD SWINGS [None]
